FAERS Safety Report 6295591-2 (Version None)
Quarter: 2009Q3

REPORT INFORMATION
  Report Type: 
  Country: None (occurrence: None)
  Receive Date: 20090731
  Receipt Date: 20090717
  Transmission Date: 20100115
  Serious: Yes (Hospitalization)
  Sender: FDA-Public Use
  Company Number: ADE2009-0757

PATIENT
  Age: 57 Year
  Sex: Female
  Weight: 89 kg

DRUGS (3)
  1. METFORMIN HCL [Suspect]
     Indication: TYPE 2 DIABETES MELLITUS
     Dosage: 850MG - BID
     Dates: end: 19881107
  2. ISOSNRBIDE DINITRATE [Concomitant]
  3. CALCIUM ANTAGONIST TYPE [Concomitant]

REACTIONS (9)
  - BLOOD GLUCOSE INCREASED [None]
  - BLOOD PRESSURE INCREASED [None]
  - CHOLELITHIASIS [None]
  - FATIGUE [None]
  - HEPATITIS ACUTE [None]
  - HEPATOMEGALY [None]
  - NAUSEA [None]
  - PYREXIA [None]
  - RETINOPATHY HYPERTENSIVE [None]
